FAERS Safety Report 15084125 (Version 2)
Quarter: 2018Q3

REPORT INFORMATION
  Report Type: Spontaneous
  Country: JP (occurrence: JP)
  Receive Date: 20180628
  Receipt Date: 20180925
  Transmission Date: 20181010
  Serious: Yes (Death)
  Sender: FDA-Public Use
  Company Number: JP-MYLANLABS-2018M1046669

PATIENT
  Age: 89 Year
  Sex: Female
  Weight: 42 kg

DRUGS (7)
  1. PROGRAF [Concomitant]
     Active Substance: TACROLIMUS\TACROLIMUS ANHYDROUS
     Indication: RHEUMATIC DISORDER
     Dosage: 2 MG, QD
     Route: 048
     Dates: start: 20130522, end: 20130619
  2. PAZOPANIB [Concomitant]
     Active Substance: PAZOPANIB
     Indication: BLADDER MASS
     Dosage: 400 MG, QD
     Route: 048
     Dates: start: 20170309
  3. ORENCIA [Suspect]
     Active Substance: ABATACEPT
     Indication: RHEUMATIC DISORDER
     Dosage: 500 MG, QD
     Route: 041
     Dates: start: 20160122, end: 20170127
  4. PREDNISOLONE. [Suspect]
     Active Substance: PREDNISOLONE
     Indication: RHEUMATIC DISORDER
     Dosage: 2.5 MG, BID
     Route: 048
     Dates: start: 20061011
  5. METHOTREXATE. [Concomitant]
     Active Substance: METHOTREXATE
     Indication: RHEUMATIC DISORDER
     Dosage: 2 MG, BID
     Route: 048
     Dates: start: 20120321, end: 20160825
  6. CALONAL [Concomitant]
     Active Substance: ACETAMINOPHEN
     Indication: RHEUMATIC DISORDER
     Dosage: 400 MG, BID
     Route: 048
     Dates: start: 20170127
  7. TRAMAL [Concomitant]
     Active Substance: TRAMADOL
     Indication: RHEUMATIC DISORDER
     Dosage: 25 MG, BID
     Route: 048
     Dates: start: 20170127

REACTIONS (1)
  - Urinary bladder sarcoma [Fatal]

NARRATIVE: CASE EVENT DATE: 201612
